FAERS Safety Report 24837537 (Version 1)
Quarter: 2025Q1

REPORT INFORMATION
  Report Type: Spontaneous
  Country: FR (occurrence: FR)
  Receive Date: 20250113
  Receipt Date: 20250113
  Transmission Date: 20250409
  Serious: Yes (Hospitalization)
  Sender: PFIZER
  Company Number: None

PATIENT
  Age: 4 Year
  Sex: Female

DRUGS (4)
  1. VINCRISTINE [Suspect]
     Active Substance: VINCRISTINE
     Indication: Diencephalic syndrome
     Route: 042
     Dates: start: 20231226, end: 202408
  2. THIOGUANINE [Suspect]
     Active Substance: THIOGUANINE
     Indication: Diencephalic syndrome
     Route: 048
     Dates: start: 20231226, end: 202408
  3. PROCARBAZINE [Suspect]
     Active Substance: PROCARBAZINE
     Indication: Diencephalic syndrome
     Route: 048
     Dates: start: 20231226, end: 202408
  4. LOMUSTINE [Suspect]
     Active Substance: LOMUSTINE
     Indication: Diencephalic syndrome
     Route: 048
     Dates: start: 20231226, end: 202408

REACTIONS (1)
  - Hepatic cytolysis [Recovering/Resolving]

NARRATIVE: CASE EVENT DATE: 20240528
